FAERS Safety Report 10136590 (Version 1)
Quarter: 2014Q2

REPORT INFORMATION
  Report Type: Spontaneous
  Country: US (occurrence: None)
  Receive Date: 20140428
  Receipt Date: 20140428
  Transmission Date: 20141212
  Serious: Yes (Other)
  Sender: FDA-Public Use
  Company Number: None

PATIENT
  Age: 61 Year
  Sex: Male
  Weight: 82.9 kg

DRUGS (2)
  1. PRIVIGEN 20 G [Suspect]
     Dosage: 30 G, MONTHLY, INTRAVENOUS
     Route: 042
     Dates: start: 20140331, end: 20140331
  2. PRIVIGEN 10 G [Suspect]
     Dates: start: 20140331, end: 20140331

REACTIONS (2)
  - Haemolysis [None]
  - Haematuria [None]
